FAERS Safety Report 5888173-5 (Version None)
Quarter: 2008Q3

REPORT INFORMATION
  Report Type: 
  Country: None (occurrence: None)
  Receive Date: 20080918
  Receipt Date: 20080908
  Transmission Date: 20090109
  Serious: Yes (Hospitalization, Other)
  Sender: FDA-Public Use
  Company Number: US-ELI_LILLY_AND_COMPANY-US200809001594

PATIENT
  Sex: Female

DRUGS (3)
  1. EVISTA [Suspect]
     Indication: OSTEOPENIA
     Dosage: 60 MG, DAILY (1/D)
     Route: 065
  2. VIACTIV /00751501/ [Concomitant]
     Dosage: UNK, DAILY (1/D)
     Route: 065
  3. LEVOTHYROXINE SODIUM [Concomitant]
     Indication: THYROID DISORDER
     Dosage: UNK, DAILY (1/D)
     Route: 065

REACTIONS (4)
  - ARRHYTHMIA [None]
  - CHEST PAIN [None]
  - MYOCARDIAL INFARCTION [None]
  - THROMBOSIS [None]
